FAERS Safety Report 6669577-X (Version None)
Quarter: 2010Q2

REPORT INFORMATION
  Report Type: 
  Country: None (occurrence: None)
  Receive Date: 20100406
  Receipt Date: 20100325
  Transmission Date: 20101027
  Serious: Yes (Life-Threatening)
  Sender: FDA-Public Use
  Company Number: AU-PFIZER INC-2010039282

PATIENT
  Age: 37 Year
  Sex: Male
  Weight: 77 kg

DRUGS (4)
  1. CHAMPIX [Suspect]
     Indication: TOBACCO USER
     Dosage: 1 MG, 1X/DAY
     Route: 048
     Dates: start: 20100209, end: 20100304
  2. ATAZANAVIR SULFATE [Concomitant]
     Indication: HIV INFECTION
     Dosage: 300 MG, 1X/DAY
     Dates: start: 20071219
  3. RITONAVIR [Concomitant]
     Indication: HIV INFECTION
     Dosage: 100 MG, 1X/DAY
     Route: 048
  4. EMTRICITABINE/TENOFOVIR DISOPROXIL FUMARATE [Concomitant]
     Indication: HIV INFECTION
     Dosage: 200 MG, 1X/DAY
     Dates: start: 20071219

REACTIONS (2)
  - MENTAL DISORDER [None]
  - SUICIDAL IDEATION [None]
